FAERS Safety Report 12657869 (Version 2)
Quarter: 2023Q1

REPORT INFORMATION
  Report Type: Spontaneous
  Country: BE (occurrence: BE)
  Receive Date: 20160817
  Receipt Date: 20230325
  Transmission Date: 20230418
  Serious: Yes (Other)
  Sender: FDA-Public Use
  Company Number: PHHY2016BE111983

PATIENT
  Age: 55 Year
  Sex: Male

DRUGS (16)
  1. TACROLIMUS [Suspect]
     Active Substance: TACROLIMUS
     Indication: Transplant
     Dosage: 0.5 MG, BID (1 MG, QD) (MONTH 5 AFTER FACIAL TRANSPLANTATION)
     Route: 065
  2. TACROLIMUS [Suspect]
     Active Substance: TACROLIMUS
     Indication: Immunosuppression
  3. MYCOPHENOLATE MOFETIL [Suspect]
     Active Substance: MYCOPHENOLATE MOFETIL
     Indication: Transplant
     Dosage: 500 MG, BID (1000 MG, QD) (MONTH 5 AFTER FACIAL TRANSPLANTATION)
     Route: 065
  4. MYCOPHENOLATE MOFETIL [Suspect]
     Active Substance: MYCOPHENOLATE MOFETIL
     Indication: Immunosuppression
  5. POSACONAZOLE [Suspect]
     Active Substance: POSACONAZOLE
     Indication: Aspergilloma
     Dosage: 400 MG, BID (800 MG, QD) (MONTH 5 AFTER FACIAL TRANSPLANTATION)
     Route: 048
     Dates: start: 2012, end: 2012
  6. METHYLPREDNISOLONE [Suspect]
     Active Substance: METHYLPREDNISOLONE
     Indication: Transplant
     Dosage: 500 MG, UNK (MONTH 5 AFTER FACIAL TRANSPLANTATION)
     Route: 042
     Dates: start: 2012
  7. METHYLPREDNISOLONE [Suspect]
     Active Substance: METHYLPREDNISOLONE
     Indication: Transplant rejection
     Dosage: 4 MG, QD
     Route: 065
  8. METHYLPREDNISOLONE [Suspect]
     Active Substance: METHYLPREDNISOLONE
     Indication: Immunosuppression
     Dosage: UNK (MONTH 5 AFTER FACIAL TRANSPLANTATION)
     Route: 042
  9. VORICONAZOLE [Concomitant]
     Active Substance: VORICONAZOLE
     Indication: Aspergillus infection
     Dosage: 200 MG, BID
     Route: 048
     Dates: start: 2012, end: 2012
  10. ITRACONAZOLE [Concomitant]
     Active Substance: ITRACONAZOLE
     Indication: Aspergillus infection
     Dosage: 100 MG
     Route: 048
     Dates: end: 2012
  11. COTRIMOXAZOLE [Concomitant]
     Active Substance: SULFAMETHOXAZOLE\TRIMETHOPRIM
     Indication: Pseudomonas infection
     Dosage: 1 DOSAGE FORM, QD (SULFAMETHOXAZOLE 400MG, TRIMETHOPRIM 80MG)
     Route: 048
  12. METFORMIN [Concomitant]
     Active Substance: METFORMIN HYDROCHLORIDE
     Indication: Glucose tolerance impaired
     Dosage: 500 MG, BID (1000 MG, QD)
     Route: 048
     Dates: start: 2012
  13. CASPOFUNGIN [Concomitant]
     Active Substance: CASPOFUNGIN
     Indication: Aspergillus infection
     Dosage: 50 MG
     Route: 042
     Dates: start: 2012, end: 2012
  14. CIPROFLOXACIN [Concomitant]
     Active Substance: CIPROFLOXACIN
     Indication: Sinusitis bacterial
     Dosage: 500 MG, BID (1000 MG, QD)
     Route: 048
     Dates: start: 2012
  15. HUMAN CYTOMEGALOVIRUS IMMUNE GLOBULIN [Concomitant]
     Active Substance: HUMAN CYTOMEGALOVIRUS IMMUNE GLOBULIN
     Indication: Transplant rejection
     Dosage: 2 GRAM PER KILOGRAM
     Route: 065
  16. TAZOBACTAM [Concomitant]
     Active Substance: TAZOBACTAM
     Indication: Pneumonia pseudomonal
     Dosage: 4 G (4X 4G)
     Route: 065

REACTIONS (1)
  - Inappropriate antidiuretic hormone secretion [Unknown]

NARRATIVE: CASE EVENT DATE: 20120101
